FAERS Safety Report 5775946-2 (Version None)
Quarter: 2008Q2

REPORT INFORMATION
  Report Type: 
  Country: None (occurrence: None)
  Receive Date: 20080601
  Receipt Date: 20080102
  Transmission Date: 20081010
  Serious: No
  Sender: FDA-Public Use
  Company Number: 2006PV027532

PATIENT
  Age: 63 Year
  Sex: Female
  Weight: 90.7 kg

DRUGS (14)
  1. EXENATIDE(EXENATIDE) PEN,DISPOSABLE [Suspect]
     Indication: TYPE 2 DIABETES MELLITUS
     Dosage: SEE IMAGE
     Route: 058
     Dates: start: 20060701, end: 20061215
  2. EXENATIDE(EXENATIDE) PEN,DISPOSABLE [Suspect]
     Indication: TYPE 2 DIABETES MELLITUS
     Dosage: SEE IMAGE
     Route: 058
     Dates: start: 20061216, end: 20061225
  3. EXENATIDE(EXENATIDE) PEN,DISPOSABLE [Suspect]
     Indication: TYPE 2 DIABETES MELLITUS
     Dosage: SEE IMAGE
     Route: 058
     Dates: start: 20061201
  4. EXENATIDE(EXENATIDE) PEN,DISPOSABLE [Suspect]
     Indication: TYPE 2 DIABETES MELLITUS
     Dosage: SEE IMAGE
     Route: 058
     Dates: start: 20061226
  5. EXENATIDE(EXENATIDE) PEN,DISPOSABLE [Suspect]
  6. GLUCOPHAGE [Concomitant]
  7. ACTOS /USA/ (PIOGLITAZONE HYDROCHLORIDE) [Concomitant]
  8. TOPROL-XL [Concomitant]
  9. ACEON /00790702/ (PERINDOPRIL ERBUMINE) [Concomitant]
  10. TRICOR /00499301/ (FENOFIBRATE) [Concomitant]
  11. PRAVACHOL [Concomitant]
  12. ASPIRIN [Concomitant]
  13. ASCORBIC ACID [Concomitant]
  14. LUTEIN EYE CARE COMPLEX [Concomitant]

REACTIONS (13)
  - ERYTHEMA [None]
  - EYE SWELLING [None]
  - FACIAL PAIN [None]
  - HERPES ZOSTER [None]
  - LYMPHADENOPATHY [None]
  - NASOPHARYNGITIS [None]
  - NAUSEA [None]
  - PRURITUS [None]
  - RASH [None]
  - SKIN INFECTION [None]
  - STRESS [None]
  - SWELLING FACE [None]
  - WEIGHT DECREASED [None]
